FAERS Safety Report 9098666 (Version 1)
Quarter: 2013Q1

REPORT INFORMATION
  Report Type: Spontaneous
  Country: US (occurrence: US)
  Receive Date: 20130213
  Receipt Date: 20130213
  Transmission Date: 20140127
  Serious: No
  Sender: FDA-Public Use
  Company Number: US-ALLERGAN-1215978US

PATIENT
  Sex: Female
  Weight: 62.13 kg

DRUGS (5)
  1. LASTACAFT [Suspect]
     Indication: EYE INFECTION
     Dosage: 1 GTT OU, QD
     Route: 047
     Dates: start: 20121105, end: 20121114
  2. SYMBICORT [Concomitant]
     Indication: ASTHMA
     Dosage: 2 PUFFS, BID
     Route: 055
  3. FLONASE [Concomitant]
     Indication: ASTHMA
     Dosage: 2 SPRAYS TO EACH NOSTRIL, QD
     Route: 045
  4. PROVENTIL                          /00139501/ [Concomitant]
     Indication: ASTHMA
     Dosage: UNK UNK, PRN
     Route: 055
  5. EPIPEN [Concomitant]
     Indication: HYPERSENSITIVITY
     Dosage: UNK UNK, PRN
     Route: 030

REACTIONS (2)
  - Visual acuity reduced [Not Recovered/Not Resolved]
  - Iris hypopigmentation [Not Recovered/Not Resolved]
